FAERS Safety Report 9643686 (Version 3)
Quarter: 2013Q4

REPORT INFORMATION
  Report Type: Spontaneous
  Country: JP (occurrence: JP)
  Receive Date: 20131024
  Receipt Date: 20131115
  Transmission Date: 20140711
  Serious: Yes (Hospitalization)
  Sender: FDA-Public Use
  Company Number: JP-BRISTOL-MYERS SQUIBB COMPANY-19610401

PATIENT
  Age: 34 Year
  Sex: Male

DRUGS (10)
  1. ABILIFY TABS [Suspect]
     Indication: DEPRESSION
     Dosage: 19JUL13-23JUL:3MG?24JUL-28JUL,6MG?29JUL-02SE,9MG?03SE-12SE,6MG
     Route: 048
     Dates: start: 20130719, end: 20130912
  2. MAGLAX [Concomitant]
     Dosage: TAB
     Route: 048
     Dates: start: 20081215, end: 20130920
  3. LEXOTAN [Concomitant]
     Dosage: TAB
     Route: 048
     Dates: start: 20130617, end: 20130920
  4. LIMAS [Concomitant]
     Dosage: TAB
     Route: 048
     Dates: start: 20070521, end: 20130920
  5. TRYPTANOL [Concomitant]
     Dosage: TAB
     Route: 048
     Dates: start: 20130702, end: 20130920
  6. AMOBAN [Concomitant]
     Dosage: TAB
     Route: 048
     Dates: end: 20130921
  7. BENZALIN [Concomitant]
     Dosage: TAB
     Route: 048
     Dates: end: 20130921
  8. CERCINE [Concomitant]
     Dosage: TAB
     Route: 048
     Dates: start: 20130907, end: 20130920
  9. CYMBALTA [Concomitant]
     Dosage: CAPS
     Route: 048
     Dates: start: 20130702, end: 20130920
  10. RISPERDAL [Concomitant]
     Dates: start: 20130919, end: 20130921

REACTIONS (4)
  - Hallucination, auditory [Not Recovered/Not Resolved]
  - Stupor [Not Recovered/Not Resolved]
  - Hallucination [Recovering/Resolving]
  - Delusion [Recovering/Resolving]
